FAERS Safety Report 10890530 (Version 1)
Quarter: 2015Q1

REPORT INFORMATION
  Report Type: Spontaneous
  Country: CH (occurrence: CH)
  Receive Date: 20150305
  Receipt Date: 20150305
  Transmission Date: 20150721
  Serious: Yes (Other)
  Sender: FDA-Public Use
  Company Number: CH-ABBVIE-15P-151-1355770-00

PATIENT
  Sex: Female

DRUGS (3)
  1. FLUCTINE [Suspect]
     Active Substance: FLUOXETINE HYDROCHLORIDE
     Indication: BORDERLINE PERSONALITY DISORDER
     Route: 048
     Dates: start: 2012, end: 2014
  2. VALPROIC ACID. [Suspect]
     Active Substance: VALPROIC ACID
     Indication: BORDERLINE PERSONALITY DISORDER
     Route: 048
     Dates: end: 20140202
  3. ABILIFY [Suspect]
     Active Substance: ARIPIPRAZOLE
     Indication: BORDERLINE PERSONALITY DISORDER
     Route: 048
     Dates: start: 2012, end: 2014

REACTIONS (1)
  - Abortion induced [Unknown]
